FAERS Safety Report 7114152-6 (Version None)
Quarter: 2010Q4

REPORT INFORMATION
  Report Type: 
  Country: None (occurrence: None)
  Receive Date: 20101119
  Receipt Date: 20101109
  Transmission Date: 20110411
  Serious: Yes (Hospitalization)
  Sender: FDA-Public Use
  Company Number: NL-MEDIMMUNE-MEDI-0011803

PATIENT
  Sex: Male

DRUGS (1)
  1. SYNAGIS [Suspect]
     Route: 051
     Dates: start: 20101015, end: 20101015

REACTIONS (2)
  - RESPIRATORY DISORDER [None]
  - SENSE OF OPPRESSION [None]
